FAERS Safety Report 9059270 (Version 1)
Quarter: 2013Q1

REPORT INFORMATION
  Report Type: Report from Study
  Country: DE (occurrence: DE)
  Receive Date: 20130211
  Receipt Date: 20130211
  Transmission Date: 20140127
  Serious: Yes (Hospitalization, Other)
  Sender: FDA-Public Use
  Company Number: IT-UCBSA-077888

PATIENT
  Age: 23 Year
  Sex: Male

DRUGS (9)
  1. VIMPAT [Suspect]
     Indication: EPILEPSY
     Dosage: 100 MG/ DAY
     Dates: start: 20090601, end: 2009
  2. VIMPAT [Suspect]
     Indication: EPILEPSY
     Dosage: DOSE: 300 MG/DAY
     Dates: start: 2009, end: 2009
  3. VIMPAT [Suspect]
     Indication: EPILEPSY
     Dosage: DOSE: 400 MG/DAY
     Dates: start: 2009
  4. VIMPAT [Suspect]
     Indication: EPILEPSY
     Dosage: DOSE: 300 MG/DAY
     Dates: end: 20100319
  5. TOPIRAMATE [Concomitant]
     Indication: EPILEPSY
     Dosage: DOSE: 200 MG/DAY
  6. OXCARBAZEPINE [Concomitant]
     Indication: EPILEPSY
     Dosage: DOSE: 1500 MG/DAY
     Dates: end: 2009
  7. OXCARBAZEPINE [Concomitant]
     Indication: EPILEPSY
     Dosage: DOSE: 1200 MG/DAY
     Dates: start: 2009
  8. ESLICARBAZEPINE [Concomitant]
     Indication: EPILEPSY
     Dosage: DOSE: 1200 MG/DAY
  9. LAMOTRIGINE [Concomitant]
     Indication: EPILEPSY
     Dosage: DOSE: 300 MG/DAY

REACTIONS (2)
  - Convulsion [Unknown]
  - Drug ineffective [Recovered/Resolved]
